FAERS Safety Report 7999832-2 (Version None)
Quarter: 2011Q4

REPORT INFORMATION
  Report Type: 
  Country: None (occurrence: None)
  Receive Date: 20111222
  Receipt Date: 20111214
  Transmission Date: 20120403
  Serious: No
  Sender: FDA-Public Use
  Company Number: US-BIOGENIDEC-2010BI040909

PATIENT
  Sex: Male

DRUGS (1)
  1. TYSABRI [Suspect]
     Indication: MULTIPLE SCLEROSIS
     Route: 042
     Dates: start: 20070801

REACTIONS (8)
  - OPTIC NEURITIS [None]
  - UPPER-AIRWAY COUGH SYNDROME [None]
  - FALL [None]
  - FATIGUE [None]
  - COUGH [None]
  - CHILLS [None]
  - MALAISE [None]
  - BALANCE DISORDER [None]
